FAERS Safety Report 12446663 (Version 1)
Quarter: 2016Q2

REPORT INFORMATION
  Report Type: Spontaneous
  Country: US (occurrence: US)
  Receive Date: 20160608
  Receipt Date: 20160608
  Transmission Date: 20160815
  Serious: No
  Sender: FDA-Public Use
  Company Number: US-BAYER-2016-111668

PATIENT
  Age: 77 Year
  Sex: Male
  Weight: 111.1 kg

DRUGS (2)
  1. INSULIN [Concomitant]
     Active Substance: INSULIN NOS
  2. MIRALAX [Suspect]
     Active Substance: POLYETHYLENE GLYCOL 3350
     Indication: CONSTIPATION
     Dosage: 2 DF, ONCE
     Route: 048
     Dates: start: 20160528, end: 20160528

REACTIONS (2)
  - Product use issue [None]
  - Rash generalised [Recovered/Resolved]

NARRATIVE: CASE EVENT DATE: 20160528
